FAERS Safety Report 21166359 (Version 1)
Quarter: 2022Q3

REPORT INFORMATION
  Report Type: Spontaneous
  Country: US (occurrence: None)
  Receive Date: 20220802
  Receipt Date: 20220802
  Transmission Date: 20221026
  Serious: Yes (Death)
  Sender: FDA-Public Use
  Company Number: None

PATIENT
  Age: 70 Year
  Sex: Male
  Weight: 118.35 kg

DRUGS (1)
  1. LUMASON [Suspect]
     Active Substance: SULFUR HEXAFLUORIDE
     Indication: Cardiac aneurysm
     Dosage: FREQUENCY : ONCE;?
     Route: 040
     Dates: start: 20220726, end: 20220726

REACTIONS (1)
  - Feeling hot [None]

NARRATIVE: CASE EVENT DATE: 20220726
